FAERS Safety Report 9536337 (Version 1)
Quarter: 2013Q3

REPORT INFORMATION
  Report Type: Spontaneous
  Country: US (occurrence: None)
  Receive Date: 20130917
  Receipt Date: 20130917
  Transmission Date: 20140515
  Serious: No
  Sender: FDA-Public Use
  Company Number: None

PATIENT
  Age: 76 Year
  Sex: Female
  Weight: 68.04 kg

DRUGS (11)
  1. OXYCODONE/ACETAMINOPHEN [Suspect]
     Indication: SCIATICA
     Dosage: 325 MG 1 TABLET, EVERY 4 HOURS, BY MOUTH
     Route: 048
     Dates: start: 20130802, end: 20130820
  2. SIMVASTATIN [Concomitant]
  3. BENAZAPRIL [Concomitant]
  4. SYMBICORT [Concomitant]
  5. FLUTICOZONE [Concomitant]
  6. MULTI VITAMINS [Concomitant]
  7. ECHINECEA [Concomitant]
  8. GLUOCASAMINE [Concomitant]
  9. CRANBERRY CAPSULES [Concomitant]
  10. D-MANNOSE POWDER [Concomitant]
  11. FISH OIL [Concomitant]

REACTIONS (6)
  - Decreased appetite [None]
  - Weight decreased [None]
  - Headache [None]
  - Nausea [None]
  - Insomnia [None]
  - Fluid intake reduced [None]
